FAERS Safety Report 11742971 (Version 1)
Quarter: 2015Q4

REPORT INFORMATION
  Report Type: Spontaneous
  Country: FR (occurrence: FR)
  Receive Date: 20151116
  Receipt Date: 20151116
  Transmission Date: 20160304
  Serious: Yes (Hospitalization, Other)
  Sender: FDA-Public Use
  Company Number: FR-PFIZER INC-2015387255

PATIENT
  Age: 88 Year
  Sex: Male

DRUGS (4)
  1. ATENOLOL. [Suspect]
     Active Substance: ATENOLOL
     Dosage: 50 MG, 1X/DAY
     Route: 048
  2. KARDEGIC [Suspect]
     Active Substance: ASPIRIN LYSINE
     Dosage: 160 MG, 1X/DAY
     Route: 048
  3. ENANTONE LP [Suspect]
     Active Substance: LEUPROLIDE ACETATE
     Indication: NEOPLASM PROSTATE
     Dosage: 1 INJECTION EVERY 3 MONTHS
     Dates: end: 20150906
  4. VASTAREL [Suspect]
     Active Substance: TRIMETAZIDINE DIHYDROCHLORIDE
     Dosage: 35 MG, 1X/DAY
     Route: 048

REACTIONS (14)
  - Blood glucose increased [Unknown]
  - Periorbital haematoma [Unknown]
  - Gait disturbance [Unknown]
  - Mobility decreased [Unknown]
  - Pyrexia [Unknown]
  - Malaise [Unknown]
  - Carotid artery stenosis [Unknown]
  - Vertigo [Not Recovered/Not Resolved]
  - Head injury [Unknown]
  - Pain [Unknown]
  - Lung disorder [Unknown]
  - Fall [Recovered/Resolved]
  - Hypoaesthesia [Unknown]
  - Cerebrovascular accident [Unknown]

NARRATIVE: CASE EVENT DATE: 20150906
